FAERS Safety Report 6972882-0 (Version None)
Quarter: 2010Q3

REPORT INFORMATION
  Report Type: 
  Country: None (occurrence: None)
  Receive Date: 20100907
  Receipt Date: 20100818
  Transmission Date: 20110219
  Serious: Yes (Hospitalization, Other)
  Sender: FDA-Public Use
  Company Number: ACO_01774_2010

PATIENT
  Sex: Female

DRUGS (14)
  1. AMPYRA [Suspect]
     Indication: PRODUCT USED FOR UNKNOWN INDICATION
     Dosage: (10 MG BID, 12 HOURS APART ORAL)
     Route: 048
     Dates: start: 20100518, end: 20100814
  2. OXYBUTYNIN [Concomitant]
  3. TRAMADOL [Concomitant]
  4. ATENOLOL [Concomitant]
  5. MIRTAZAPINE [Concomitant]
  6. TYSABRI [Concomitant]
  7. PROVIGIL [Concomitant]
  8. MAXALT-MLT [Concomitant]
  9. WELLBUTRIN [Concomitant]
  10. BACLOFEN [Concomitant]
  11. TYLENOL (CAPLET) [Concomitant]
  12. AMBIEN [Concomitant]
  13. MULTI-VITAMINS [Concomitant]
  14. CALCIUM [Concomitant]

REACTIONS (2)
  - CONVULSION [None]
  - FALL [None]
